FAERS Safety Report 10047592 (Version 3)
Quarter: 2014Q2

REPORT INFORMATION
  Report Type: Spontaneous
  Country: JP (occurrence: JP)
  Receive Date: 20140331
  Receipt Date: 20140404
  Transmission Date: 20141212
  Serious: Yes (Other)
  Sender: FDA-Public Use
  Company Number: JP-PFIZER INC-2014045551

PATIENT
  Age: 61 Year
  Sex: Male
  Weight: 58 kg

DRUGS (5)
  1. SUTENT [Suspect]
     Indication: RENAL CELL CARCINOMA
     Dosage: UNK
     Route: 048
     Dates: start: 20100305, end: 20110721
  2. SUTENT [Suspect]
     Dosage: UNK
     Route: 048
     Dates: start: 20111028, end: 20120107
  3. NORVASC OD [Concomitant]
     Dosage: 5 MG, 1X/DAY
     Route: 048
  4. GASTER D [Concomitant]
     Dosage: 20 MG, 2X/DAY
     Route: 048
  5. LOXONIN [Concomitant]
     Indication: RENAL CELL CARCINOMA
     Dosage: 60 MG, AS NEEDED
     Route: 048

REACTIONS (3)
  - Disseminated intravascular coagulation [Recovered/Resolved]
  - Disease progression [Unknown]
  - Renal cell carcinoma [Unknown]
